FAERS Safety Report 23515989 (Version 1)
Quarter: 2024Q1

REPORT INFORMATION
  Report Type: Spontaneous
  Country: US (occurrence: US)
  Receive Date: 20240213
  Receipt Date: 20240213
  Transmission Date: 20240410
  Serious: No
  Sender: FDA-Public Use
  Company Number: US-GSK-US2024015506

PATIENT
  Age: 36 Year
  Sex: Male

DRUGS (5)
  1. NUCALA [Suspect]
     Active Substance: MEPOLIZUMAB
     Indication: Nasal oedema
     Dosage: UNK, MO ONCE A MONTH
     Dates: start: 20240129
  2. NUCALA [Suspect]
     Active Substance: MEPOLIZUMAB
     Indication: Vision blurred
  3. NUCALA [Suspect]
     Active Substance: MEPOLIZUMAB
     Indication: Fatigue
  4. NUCALA [Suspect]
     Active Substance: MEPOLIZUMAB
     Indication: Brain fog
  5. MONTELUKAST [Concomitant]
     Active Substance: MONTELUKAST SODIUM
     Indication: Multiple allergies
     Dosage: UNK
     Dates: start: 20240129

REACTIONS (1)
  - Product use in unapproved indication [Unknown]

NARRATIVE: CASE EVENT DATE: 20240129
